FAERS Safety Report 8379931-6 (Version None)
Quarter: 2012Q2

REPORT INFORMATION
  Report Type: 
  Country: None (occurrence: None)
  Receive Date: 20120523
  Receipt Date: 20120521
  Transmission Date: 20120825
  Serious: Yes (Other)
  Sender: FDA-Public Use
  Company Number: US-PFIZER INC-2012123108

PATIENT
  Sex: Female
  Weight: 36.281 kg

DRUGS (6)
  1. ZOLOFT [Suspect]
     Indication: MAJOR DEPRESSION
     Dosage: 100 MG, 2X/DAY
  2. ENALAPRIL [Concomitant]
     Indication: HYPERTENSION
     Dosage: 10 MG, DAILY
  3. SECTRAL [Concomitant]
     Indication: MITRAL VALVE PROLAPSE
     Dosage: UNK, DAILY
  4. VISTARIL [Suspect]
     Dosage: UNK
  5. ZOLOFT [Suspect]
     Indication: ANXIETY
  6. ZOLOFT [Suspect]
     Indication: PANIC ATTACK

REACTIONS (1)
  - NEOPLASM MALIGNANT [None]
